FAERS Safety Report 6439804-2 (Version None)
Quarter: 2009Q4

REPORT INFORMATION
  Report Type: 
  Country: None (occurrence: None)
  Receive Date: 20091113
  Receipt Date: 20091104
  Transmission Date: 20100525
  Serious: Yes (Hospitalization, Disabling, Other)
  Sender: FDA-Public Use
  Company Number: US-MERCK-0901USA01110

PATIENT
  Age: 69 Year
  Sex: Female

DRUGS (2)
  1. FOSAMAX [Suspect]
     Indication: OSTEOPOROSIS
     Route: 048
     Dates: start: 20041113, end: 20050701
  2. PREDNISONE [Suspect]
     Route: 065

REACTIONS (59)
  - ABDOMINAL PAIN [None]
  - ABDOMINAL TENDERNESS [None]
  - ACUTE MYOCARDIAL INFARCTION [None]
  - ANAEMIA [None]
  - ASTHENIA [None]
  - AUTOIMMUNE NEUTROPENIA [None]
  - BACK DISORDER [None]
  - BACK PAIN [None]
  - BONE DENSITY DECREASED [None]
  - CARDIAC FAILURE CONGESTIVE [None]
  - CEREBROVASCULAR ACCIDENT [None]
  - CORONARY ARTERY DISEASE [None]
  - COUGH [None]
  - DECREASED APPETITE [None]
  - DERMATITIS [None]
  - DIPLOPIA [None]
  - DRUG HYPERSENSITIVITY [None]
  - DYSPEPSIA [None]
  - EAR INFECTION [None]
  - EYE INFECTION [None]
  - FATIGUE [None]
  - FISTULA DISCHARGE [None]
  - GINGIVAL INFECTION [None]
  - GINGIVITIS [None]
  - GLOSSODYNIA [None]
  - HEADACHE [None]
  - HEPATITIS B ANTIBODY POSITIVE [None]
  - HIATUS HERNIA [None]
  - HYPERTENSION [None]
  - HYPOCHROMIC ANAEMIA [None]
  - IMMUNE SYSTEM DISORDER [None]
  - IMPAIRED HEALING [None]
  - INCREASED TENDENCY TO BRUISE [None]
  - INSOMNIA [None]
  - LEUKOPENIA [None]
  - LYMPHOID TISSUE HYPERPLASIA [None]
  - MITRAL VALVE INCOMPETENCE [None]
  - MITRAL VALVE PROLAPSE [None]
  - MYALGIA [None]
  - OEDEMA PERIPHERAL [None]
  - ORAL DISORDER [None]
  - ORAL INFECTION [None]
  - ORAL PAIN [None]
  - OROPHARYNGEAL PAIN [None]
  - OSTEOMYELITIS [None]
  - OSTEONECROSIS [None]
  - RAYNAUD'S PHENOMENON [None]
  - SEPSIS [None]
  - SINUSITIS [None]
  - SPINAL FRACTURE [None]
  - THROMBOCYTOPENIA [None]
  - TONGUE DISORDER [None]
  - TOOTH ABSCESS [None]
  - TOOTH DISORDER [None]
  - TOOTH INFECTION [None]
  - URINARY TRACT INFECTION [None]
  - VERTIGO [None]
  - WEIGHT DECREASED [None]
  - WHITE BLOOD CELL COUNT DECREASED [None]
